FAERS Safety Report 17923439 (Version 1)
Quarter: 2020Q2

REPORT INFORMATION
  Report Type: Spontaneous
  Country: FR (occurrence: FR)
  Receive Date: 20200622
  Receipt Date: 20200622
  Transmission Date: 20200714
  Serious: Yes (Hospitalization)
  Sender: FDA-Public Use
  Company Number: FR-ACCORD-186148

PATIENT
  Age: 67 Year
  Sex: Male
  Weight: 73 kg

DRUGS (14)
  1. BISOCE [Concomitant]
     Active Substance: BISOPROLOL
  2. KARDEGIC [Concomitant]
     Active Substance: ASPIRIN DL-LYSINE
  3. RAMIPRIL. [Concomitant]
     Active Substance: RAMIPRIL
  4. FUMAFER [Concomitant]
     Active Substance: FERROUS FUMARATE
  5. JANUVIA [Concomitant]
     Active Substance: SITAGLIPTIN PHOSPHATE
  6. NICOPATCH [Concomitant]
     Active Substance: NICOTINE
  7. ROSUVASTATIN. [Suspect]
     Active Substance: ROSUVASTATIN
     Indication: PROPHYLAXIS
     Route: 048
     Dates: end: 20200121
  8. PANTOPRAZOLE [Concomitant]
     Active Substance: PANTOPRAZOLE
  9. LASILIX [Concomitant]
     Active Substance: FUROSEMIDE
  10. LEVOTHYROX [Concomitant]
     Active Substance: LEVOTHYROXINE
  11. SERESTA [Concomitant]
     Active Substance: OXAZEPAM
  12. COUMADIN [Concomitant]
     Active Substance: WARFARIN SODIUM
  13. EPLERENONE. [Concomitant]
     Active Substance: EPLERENONE
  14. VICTOZA [Concomitant]
     Active Substance: LIRAGLUTIDE

REACTIONS (2)
  - Photosensitivity reaction [Recovering/Resolving]
  - Eczema [Recovering/Resolving]

NARRATIVE: CASE EVENT DATE: 201910
